FAERS Safety Report 18216618 (Version 9)
Quarter: 2024Q3

REPORT INFORMATION
  Report Type: Spontaneous
  Country: JP (occurrence: JP)
  Receive Date: 20200901
  Receipt Date: 20240910
  Transmission Date: 20241016
  Serious: Yes (Death, Hospitalization, Other)
  Sender: ROCHE
  Company Number: JP-ROCHE-2668873

PATIENT
  Age: 25 Year
  Sex: Female

DRUGS (10)
  1. VALGANCICLOVIR HYDROCHLORIDE [Suspect]
     Active Substance: VALGANCICLOVIR HYDROCHLORIDE
     Indication: Stem cell transplant
     Dosage: 900 MILLIGRAM
     Route: 048
  2. VALGANCICLOVIR HYDROCHLORIDE [Suspect]
     Active Substance: VALGANCICLOVIR HYDROCHLORIDE
     Route: 048
  3. GANCICLOVIR [Suspect]
     Active Substance: GANCICLOVIR
     Indication: Product used for unknown indication
     Dosage: SOLUTION FOR INFUSION?500 MILLIGRAM
     Route: 041
  4. VORICONAZOLE [Suspect]
     Active Substance: VORICONAZOLE
     Indication: Product used for unknown indication
     Route: 048
  5. AMBISOME [Suspect]
     Active Substance: AMPHOTERICIN B
     Indication: Product used for unknown indication
     Route: 041
  6. PREVYMIS [Concomitant]
     Active Substance: LETERMOVIR
  7. AMPHOTERICIN B [Concomitant]
     Active Substance: AMPHOTERICIN B
     Route: 042
  8. PREDONINE [Concomitant]
     Active Substance: PREDNISOLONE
  9. VITAMIN C [Concomitant]
     Active Substance: ASCORBIC ACID
  10. ZOVIRAX [Concomitant]
     Active Substance: ACYCLOVIR

REACTIONS (14)
  - Fungal infection [Fatal]
  - Red blood cell count decreased [Unknown]
  - Platelet count decreased [Unknown]
  - Mucormycosis [Unknown]
  - Lymphopenia [Unknown]
  - Leukaemia [Unknown]
  - Platelet transfusion [Unknown]
  - Red blood cell transfusion [Unknown]
  - Myelosuppression [Unknown]
  - Hepatic hypertrophy [Unknown]
  - Neutrophil count decreased [Unknown]
  - Dyspnoea [Unknown]
  - Pneumocystis jirovecii pneumonia [Unknown]
  - Staphylococcal infection [Unknown]
